FAERS Safety Report 24382916 (Version 2)
Quarter: 2024Q4

REPORT INFORMATION
  Report Type: Spontaneous
  Country: US (occurrence: US)
  Receive Date: 20241001
  Receipt Date: 20241031
  Transmission Date: 20250114
  Serious: No
  Sender: PFIZER
  Company Number: US-PFIZER INC-PV202400055483

PATIENT
  Age: 14 Year
  Sex: Male

DRUGS (2)
  1. GENOTROPIN [Suspect]
     Active Substance: SOMATROPIN
     Indication: Hypopituitarism
     Dosage: 1.8 MG, ALTERNATE DAY (1.8 MG, ALTERNATING WITH 2 MG 7 DAYS/WEEK)
  2. GENOTROPIN [Suspect]
     Active Substance: SOMATROPIN
     Indication: Growth hormone deficiency
     Dosage: 2 MG, ALTERNATE DAY (1.8 MG, ALTERNATING WITH 2 MG 7 DAYS/WEEK)

REACTIONS (2)
  - Osteoporosis [Unknown]
  - Product prescribing issue [Unknown]
